FAERS Safety Report 5702416-X (Version None)
Quarter: 2008Q2

REPORT INFORMATION
  Report Type: 
  Country: None (occurrence: None)
  Receive Date: 20080411
  Receipt Date: 20080407
  Transmission Date: 20081010
  Serious: Yes (Life-Threatening, Hospitalization, Other)
  Sender: FDA-Public Use
  Company Number: ES-BAYER-200816290GPV

PATIENT
  Age: 76 Year
  Sex: Male

DRUGS (6)
  1. ASPIRIN [Suspect]
     Indication: HYPERTENSION
     Route: 048
     Dates: end: 20070910
  2. ATACAND [Concomitant]
     Indication: HYPERTENSION
     Route: 048
  3. EUGLUCON/ GLIBENCLAMIDA [Concomitant]
     Indication: DIABETES MELLITUS
     Route: 048
  4. METFORMIN HCL [Concomitant]
     Indication: DIABETES MELLITUS
     Route: 048
  5. ASTUDAL/ AMLODIPINE [Concomitant]
     Indication: HYPERTENSION
     Route: 052
  6. HIDROSALURETIL/HIDROCLOROTIAZIDE [Concomitant]
     Indication: HYPERTENSION
     Route: 048

REACTIONS (4)
  - ANAEMIA [None]
  - DUODENAL ULCER [None]
  - EROSIVE DUODENITIS [None]
  - UPPER GASTROINTESTINAL HAEMORRHAGE [None]
